FAERS Safety Report 9314768 (Version 1)
Quarter: 2013Q2

REPORT INFORMATION
  Report Type: Spontaneous
  Country: GR (occurrence: GR)
  Receive Date: 20130529
  Receipt Date: 20130529
  Transmission Date: 20140414
  Serious: Yes (Hospitalization)
  Sender: FDA-Public Use
  Company Number: GR-ROCHE-1229823

PATIENT
  Age: 7 Year
  Sex: Female
  Weight: 13.8 kg

DRUGS (6)
  1. XOLAIR [Suspect]
     Indication: PRODUCT USED FOR UNKNOWN INDICATION
     Route: 058
  2. XOLAIR [Suspect]
     Route: 058
  3. XOLAIR [Suspect]
     Route: 058
  4. XOLAIR [Suspect]
     Route: 058
     Dates: start: 20130320
  5. AEROLIN [Concomitant]
  6. PULMICORT [Concomitant]

REACTIONS (1)
  - Henoch-Schonlein purpura [Recovered/Resolved]
